FAERS Safety Report 9189273 (Version 1)
Quarter: 2013Q1

REPORT INFORMATION
  Report Type: Spontaneous
  Country: US (occurrence: None)
  Receive Date: 20130322
  Receipt Date: 20130322
  Transmission Date: 20140127
  Serious: Yes (Death)
  Sender: FDA-Public Use
  Company Number: FK201300807

PATIENT
  Sex: Male

DRUGS (5)
  1. METOPROLOL [Suspect]
     Indication: PRODUCT USED FOR UNKNOWN INDICATION
  2. FENTANYL (FENTANYL) [Suspect]
     Indication: PRODUCT USED FOR UNKNOWN INDICATION
  3. OXYCODONE /ACETAMINOPHEN TABLETS (PARACETAMOL, OXYCODONE HYDROCHLORIDE) [Suspect]
     Indication: PRODUCT USED FOR UNKNOWN INDICATION
  4. AMLDIPINE [Suspect]
     Indication: PRODUCT USED FOR UNKNOWN INDICATION
  5. ETHANOL (ETHANOL) (UNKNOWN) (ETHANOL) [Suspect]
     Indication: PRODUCT USED FOR UNKNOWN INDICATION

REACTIONS (1)
  - Intentional drug misuse [None]
